FAERS Safety Report 25427609 (Version 1)
Quarter: 2025Q2

REPORT INFORMATION
  Report Type: Spontaneous
  Country: US (occurrence: US)
  Receive Date: 20250612
  Receipt Date: 20250612
  Transmission Date: 20250716
  Serious: Yes (Hospitalization, Other)
  Sender: HIKMA
  Company Number: US-HIKMA PHARMACEUTICALS USA INC.-US-H14001-25-07490

PATIENT
  Age: 57 Year
  Sex: Female

DRUGS (2)
  1. KETAMINE [Suspect]
     Active Substance: KETAMINE
     Indication: Product used for unknown indication
     Route: 065
  2. LENVIMA [Concomitant]
     Active Substance: LENVATINIB
     Indication: Neoplasm malignant
     Dosage: 14 MILLIGRAM, QD
     Route: 048
     Dates: start: 202411

REACTIONS (2)
  - Drug hypersensitivity [Unknown]
  - Hallucination [Unknown]
